FAERS Safety Report 9651994 (Version 2)
Quarter: 2014Q1

REPORT INFORMATION
  Report Type: Spontaneous
  Country: US (occurrence: US)
  Receive Date: 20131029
  Receipt Date: 20140203
  Transmission Date: 20141002
  Serious: No
  Sender: FDA-Public Use
  Company Number: US-PFIZER INC-2013305109

PATIENT
  Age: 83 Year
  Sex: Female
  Weight: 63.49 kg

DRUGS (4)
  1. ADVIL [Suspect]
     Indication: PAIN
     Dosage: 400 MG (2 TABLETS OF 200 MG), ONCE
     Route: 048
     Dates: start: 201310, end: 201310
  2. BABY ASPIRIN [Concomitant]
     Indication: TRANSIENT ISCHAEMIC ATTACK
     Dosage: 81 MG, UNK
  3. CALCIUM [Concomitant]
     Dosage: UNK
  4. VITAMIN D [Concomitant]
     Dosage: UNK

REACTIONS (2)
  - Drug ineffective [Unknown]
  - Vertigo [Recovering/Resolving]
